FAERS Safety Report 7288624-8 (Version None)
Quarter: 2011Q1

REPORT INFORMATION
  Report Type: 
  Country: None (occurrence: None)
  Receive Date: 20110211
  Receipt Date: 20110204
  Transmission Date: 20110831
  Serious: Yes (Hospitalization, Other)
  Sender: FDA-Public Use
  Company Number: BR-BRISTOL-MYERS SQUIBB COMPANY-15536360

PATIENT
  Age: 77 Year
  Sex: Female
  Weight: 69 kg

DRUGS (7)
  1. ALENDRONATE SODIUM [Concomitant]
  2. CARVEDILOL [Concomitant]
  3. SIMVASTATIN [Concomitant]
  4. ARADOIS [Concomitant]
  5. BROMAZEPAM [Concomitant]
  6. COUMADIN [Suspect]
     Indication: ARRHYTHMIA
     Dosage: INITIAL DOSE 2.5MG/D
     Route: 048
  7. AMLODIPINE [Concomitant]

REACTIONS (3)
  - VAGINAL HAEMORRHAGE [None]
  - NEPHROLITHIASIS [None]
  - MEDICATION ERROR [None]
